FAERS Safety Report 7941369-0 (Version None)
Quarter: 2011Q4

REPORT INFORMATION
  Report Type: 
  Country: None (occurrence: None)
  Receive Date: 20111122
  Receipt Date: 20111122
  Transmission Date: 20120403
  Serious: Yes (Death, Hospitalization)
  Sender: FDA-Public Use
  Company Number: None

PATIENT
  Age: 83 Year
  Sex: Female

DRUGS (3)
  1. METFORMIN (GLUCOPHAGE) [Suspect]
     Indication: BLOOD GLUCOSE INCREASED
     Dosage: UTAH VALLEY 2/DAY BY MOUTH REG. MED. CNTR.
     Dates: start: 20080301
  2. AVANDIA [Concomitant]
  3. MANY OTHER BP , DIABETIC, + DEPRESSION PRODUCTS (BUT DEATH WAS CAUSED [Concomitant]

REACTIONS (3)
  - RESPIRATION ABNORMAL [None]
  - HYPOGLYCAEMIA [None]
  - UNEVALUABLE EVENT [None]
